FAERS Safety Report 24442570 (Version 1)
Quarter: 2024Q4

REPORT INFORMATION
  Report Type: Spontaneous
  Country: US (occurrence: US)
  Receive Date: 20241016
  Receipt Date: 20241016
  Transmission Date: 20250115
  Serious: Yes (Hospitalization)
  Sender: LUOXIN AUROVITAS PHARMA(CHENGDU)
  Company Number: US-LUOXIN-LUX-2024-US-LIT-00058

PATIENT
  Age: 79 Year
  Sex: Male

DRUGS (4)
  1. ALBUTEROL SULFATE [Suspect]
     Active Substance: ALBUTEROL SULFATE
     Indication: Chronic obstructive pulmonary disease
     Route: 065
  2. IPRATROPIUM BROMIDE [Suspect]
     Active Substance: IPRATROPIUM BROMIDE
     Indication: Chronic obstructive pulmonary disease
     Route: 065
  3. METHYLPREDNISOLONE SODIUM SUCCINATE [Suspect]
     Active Substance: METHYLPREDNISOLONE SODIUM SUCCINATE
     Indication: Chronic obstructive pulmonary disease
     Route: 042
  4. CISATRACURIUM BESYLATE [Suspect]
     Active Substance: CISATRACURIUM BESYLATE
     Indication: Chronic obstructive pulmonary disease
     Route: 065

REACTIONS (2)
  - Bronchospasm paradoxical [Recovered/Resolved]
  - Drug ineffective [Unknown]
